FAERS Safety Report 5080260-7 (Version None)
Quarter: 2006Q3

REPORT INFORMATION
  Report Type: 
  Country: None (occurrence: None)
  Receive Date: 20060810
  Receipt Date: 20060727
  Transmission Date: 20061208
  Serious: Yes (Hospitalization, Other)
  Sender: FDA-Public Use
  Company Number: US200607005060

PATIENT
  Age: 57 Year
  Sex: Female

DRUGS (2)
  1. HUMULIN L [Suspect]
     Indication: DIABETES MELLITUS
  2. HUMALOG [Suspect]
     Indication: DIABETES MELLITUS

REACTIONS (4)
  - ANKLE FRACTURE [None]
  - FALL [None]
  - OSTEOPOROSIS [None]
  - RENAL FAILURE CHRONIC [None]
